FAERS Safety Report 6360612-5 (Version None)
Quarter: 2009Q3

REPORT INFORMATION
  Report Type: 
  Country: None (occurrence: None)
  Receive Date: 20090915
  Receipt Date: 20090901
  Transmission Date: 20100115
  Serious: Yes (Other)
  Sender: FDA-Public Use
  Company Number: DSA_33714_2009

PATIENT
  Sex: Female

DRUGS (2)
  1. ATIVAN [Suspect]
     Indication: THERAPY CESSATION
     Dosage: (1 MG, FREQUENCY UNKNOWN)
  2. AVINZA [Suspect]
     Indication: DRUG USE FOR UNKNOWN INDICATION
     Dosage: (30 MG, FREQUENCY NOT REPORTED)

REACTIONS (7)
  - ANXIETY [None]
  - DYSKINESIA [None]
  - DYSTONIA [None]
  - METABOLIC DISORDER [None]
  - PALPITATIONS [None]
  - PARTIAL SEIZURES [None]
  - WITHDRAWAL SYNDROME [None]
